FAERS Safety Report 14701795 (Version 1)
Quarter: 2018Q1

REPORT INFORMATION
  Report Type: Report from Study
  Country: IT (occurrence: IT)
  Receive Date: 20180331
  Receipt Date: 20180331
  Transmission Date: 20180509
  Serious: Yes (Other)
  Sender: FDA-Public Use
  Company Number: IT-TEVA-2018-IT-875642

PATIENT
  Age: 37 Year
  Sex: Male

DRUGS (4)
  1. MANTADAN [Concomitant]
     Active Substance: AMANTADINE HYDROCHLORIDE
     Indication: MULTIPLE SCLEROSIS
     Dosage: 200 MILLIGRAM DAILY;
     Route: 048
     Dates: start: 2013
  2. COPAXONE [Suspect]
     Active Substance: GLATIRAMER ACETATE
     Route: 058
     Dates: end: 20180309
  3. LYRICA [Concomitant]
     Active Substance: PREGABALIN
     Indication: MULTIPLE SCLEROSIS
     Dosage: 50 MILLIGRAM DAILY;
     Route: 048
     Dates: start: 2013
  4. COPAXONE [Suspect]
     Active Substance: GLATIRAMER ACETATE
     Indication: MULTIPLE SCLEROSIS
     Route: 065

REACTIONS (4)
  - Dyspnoea [Recovered/Resolved]
  - Pyrexia [Recovered/Resolved]
  - Tremor [Recovered/Resolved]
  - Swelling face [Recovered/Resolved]

NARRATIVE: CASE EVENT DATE: 20180309
